FAERS Safety Report 11340259 (Version 1)
Quarter: 2015Q3

REPORT INFORMATION
  Report Type: Spontaneous
  Country: US (occurrence: None)
  Receive Date: 20150803
  Receipt Date: 20150803
  Transmission Date: 20151125
  Serious: Yes (Hospitalization, Other)
  Sender: FDA-Public Use
  Company Number: 2015-US-000024

PATIENT
  Age: 66 Year
  Sex: Male

DRUGS (1)
  1. SULFAMETHOPRIM-DS [Suspect]
     Active Substance: SULFAMETHOXAZOLE\TRIMETHOPRIM
     Indication: PNEUMOCYSTIS JIROVECII PNEUMONIA
     Route: 048
     Dates: start: 201304, end: 201305

REACTIONS (4)
  - Asterixis [None]
  - Myoclonus [None]
  - Postural tremor [None]
  - Thrombocytopenia [None]

NARRATIVE: CASE EVENT DATE: 201304
